FAERS Safety Report 6555887-3 (Version None)
Quarter: 2010Q1

REPORT INFORMATION
  Report Type: 
  Country: None (occurrence: None)
  Receive Date: 20100125
  Receipt Date: 20100118
  Transmission Date: 20100710
  Serious: Yes (Other)
  Sender: FDA-Public Use
  Company Number: 2010SP001171

PATIENT
  Age: 49 Year
  Sex: Male
  Weight: 69 kg

DRUGS (3)
  1. TEMODAL [Suspect]
     Indication: GLIOMA
     Dosage: 75 MG/M2; QD; PO
     Route: 048
     Dates: start: 20090923, end: 20100106
  2. OMEPRAZOLE [Concomitant]
  3. VALPROIC ACID [Concomitant]

REACTIONS (4)
  - HEPATITIS A [None]
  - HEPATITIS TOXIC [None]
  - IDIOSYNCRATIC DRUG REACTION [None]
  - SERUM FERRITIN INCREASED [None]
